FAERS Safety Report 8747255 (Version 3)
Quarter: 2012Q4

REPORT INFORMATION
  Report Type: 
  Country: US (occurrence: US)
  Receive Date: 20120827
  Receipt Date: 20121012
  Transmission Date: 20130627
  Serious: Yes (Death)
  Sender: FDA-Public Use
  Company Number: US-CELGENEUS-163-21880-12082230

PATIENT
  Age: 73 Year
  Sex: Male

DRUGS (22)
  1. REVLIMID [Suspect]
     Indication: MULTIPLE MYELOMA
     Dosage: 25 Milligram
     Route: 048
     Dates: start: 20090616
  2. REVLIMID [Suspect]
     Dosage: 15 Milligram
     Route: 048
     Dates: start: 200908
  3. REVLIMID [Suspect]
     Dosage: 5 Milligram
     Route: 048
     Dates: start: 201002
  4. REVLIMID [Suspect]
     Dates: start: 201006
  5. ASPIRIN [Concomitant]
     Indication: DRUG USE FOR UNKNOWN INDICATION
     Dosage: 81 Milligram
     Route: 065
  6. CACLIUM + D [Concomitant]
     Indication: DRUG USE FOR UNKNOWN INDICATION
     Route: 065
  7. COLACE [Concomitant]
     Indication: DRUG USE FOR UNKNOWN INDICATION
     Dosage: 100 Milligram
     Route: 065
  8. DECADRON [Concomitant]
     Indication: DRUG USE FOR UNKNOWN INDICATION
     Dosage: .5 Milligram
     Route: 065
  9. FINASTERIDE [Concomitant]
     Indication: DRUG USE FOR UNKNOWN INDICATION
     Dosage: 5 Milligram
     Route: 065
  10. GLIPIZIDE ER [Concomitant]
     Indication: DRUG USE FOR UNKNOWN INDICATION
     Dosage: 2.5 Milligram
     Route: 065
  11. HUMULIN L [Concomitant]
     Indication: DRUG USE FOR UNKNOWN INDICATION
     Dosage: U-100
     Route: 065
  12. LANOXIN [Concomitant]
     Indication: DRUG USE FOR UNKNOWN INDICATION
     Dosage: .25 Milligram
     Route: 065
  13. LASIX [Concomitant]
     Indication: DRUG USE FOR UNKNOWN INDICATION
     Dosage: 20 Milligram
     Route: 065
  14. MULTIVITAMIN [Concomitant]
     Indication: DRUG USE FOR UNKNOWN INDICATION
     Route: 065
  15. OCUVITE [Concomitant]
     Indication: DRUG USE FOR UNKNOWN INDICATION
     Route: 065
  16. OMEGA-3 [Concomitant]
     Indication: DRUG USE FOR UNKNOWN INDICATION
     Route: 065
  17. FISH OIL [Concomitant]
     Indication: DRUG USE FOR UNKNOWN INDICATION
     Route: 065
  18. POTASSIUM CHLORIDE ER [Concomitant]
     Indication: DRUG USE FOR UNKNOWN INDICATION
     Dosage: 10 Milliequivalents
     Route: 065
  19. PRILOSEC [Concomitant]
     Indication: DRUG USE FOR UNKNOWN INDICATION
     Dosage: 20 Milligram
     Route: 065
  20. PROCHLORPERAZINE [Concomitant]
     Indication: DRUG USE FOR UNKNOWN INDICATION
     Dosage: 5 Milligram
     Route: 065
  21. REVATIO [Concomitant]
     Indication: DRUG USE FOR UNKNOWN INDICATION
     Dosage: 20 Milligram
     Route: 065
  22. SEPTRA [Concomitant]
     Indication: DRUG USE FOR UNKNOWN INDICATION
     Dosage: 400-80mg
     Route: 065

REACTIONS (2)
  - Plasma cell myeloma [Fatal]
  - Cardiac failure congestive [Fatal]
